FAERS Safety Report 5166855-0 (Version None)
Quarter: 2006Q4

REPORT INFORMATION
  Report Type: 
  Country: None (occurrence: None)
  Receive Date: 20061204
  Receipt Date: 20061204
  Transmission Date: 20070319
  Serious: Yes (Other)
  Sender: FDA-Public Use
  Company Number: None

PATIENT
  Age: 61 Year
  Sex: Male
  Weight: 64.8644 kg

DRUGS (2)
  1. BONIVA [Suspect]
     Indication: OSTEOPOROSIS
     Dosage: 1 PILL ONCE A MONTH PO
     Route: 048
     Dates: start: 20060301, end: 20060701
  2. FOSAMAX [Suspect]
     Indication: OSTEOPOROSIS
     Dosage: 1 PILL ONCE A WEEK PO
     Route: 048
     Dates: start: 20061011, end: 20061125

REACTIONS (6)
  - ADVERSE DRUG REACTION [None]
  - ARTHRALGIA [None]
  - BONE PAIN [None]
  - EYE SWELLING [None]
  - PAIN IN EXTREMITY [None]
  - SCLERITIS [None]
